FAERS Safety Report 9684644 (Version 2)
Quarter: 2013Q4

REPORT INFORMATION
  Report Type: Report from Study
  Country: JP (occurrence: JP)
  Receive Date: 20131112
  Receipt Date: 20131112
  Transmission Date: 20140711
  Serious: Yes (Death)
  Sender: FDA-Public Use
  Company Number: JP-TAKEDA-TCI2013A04183

PATIENT
  Age: 77 Year
  Sex: Male
  Weight: 65 kg

DRUGS (7)
  1. LANSOPRAZOLE [Suspect]
     Indication: PROPHYLAXIS AGAINST GASTROINTESTINAL ULCER
     Dosage: 15 MG, QD
     Route: 048
     Dates: start: 20110824, end: 20111121
  2. BLOPRESS [Concomitant]
     Dosage: 8 MG, 1 DAY
     Route: 048
     Dates: end: 20111121
  3. BAYASPIRIN [Concomitant]
     Indication: THROMBOSIS PROPHYLAXIS
     Dosage: 100 MG, 1 DAYS
     Route: 048
     Dates: start: 20110824, end: 20111121
  4. ALLORIN [Concomitant]
     Dosage: UNK
     Route: 048
     Dates: end: 20111121
  5. FUROSEMIDE [Concomitant]
     Dosage: 20 MG, 1 DAYS
     Route: 048
     Dates: end: 20111121
  6. SPIRONOLACTONE [Concomitant]
     Dosage: 50 MG, 1 DAYS
     Route: 048
     Dates: end: 20111121
  7. SLOW-K [Concomitant]
     Dosage: UNK
     Route: 048
     Dates: end: 20111121

REACTIONS (2)
  - Cardiac failure chronic [Fatal]
  - Alcoholism [Fatal]
